FAERS Safety Report 9493714 (Version 1)
Quarter: 2013Q3

REPORT INFORMATION
  Report Type: Spontaneous
  Country: CN (occurrence: CN)
  Receive Date: 20130902
  Receipt Date: 20130902
  Transmission Date: 20140515
  Serious: Yes (Other)
  Sender: FDA-Public Use
  Company Number: CN-PFIZER INC-2013248692

PATIENT
  Age: 16 Year
  Sex: Male
  Weight: 40 kg

DRUGS (2)
  1. ZYVOX [Suspect]
     Indication: ACINETOBACTER TEST POSITIVE
     Dosage: 0.6 G, 2X/DAY
     Route: 041
     Dates: start: 20120406, end: 20120406
  2. CEFOPERAZONE SODIUM/SULBACTAM SODIUM [Concomitant]
     Dosage: 3 G, 3X/DAY
     Dates: start: 20120405, end: 20120521

REACTIONS (3)
  - Petit mal epilepsy [Recovering/Resolving]
  - Grand mal convulsion [Recovering/Resolving]
  - Tic [Recovering/Resolving]
